FAERS Safety Report 4870183-8 (Version None)
Quarter: 2005Q4

REPORT INFORMATION
  Report Type: 
  Country: None (occurrence: None)
  Receive Date: 20051228
  Receipt Date: 20051214
  Transmission Date: 20060501
  Serious: Yes (Hospitalization, Other)
  Sender: FDA-Public Use
  Company Number: US200512002417

PATIENT
  Age: 81 Year
  Sex: Female

DRUGS (5)
  1. XIGRIS [Suspect]
     Indication: SEPSIS
     Dosage: SEE IMAGE
     Route: 042
  2. CEFOTETAN (CEFOTETAN) [Concomitant]
  3. HEPARIN SODIUM [Concomitant]
  4. NOREPINEPHRINE BITARTRATE [Concomitant]
  5. ALBUMIN (HUMAN) [Concomitant]

REACTIONS (4)
  - ACTIVATED PARTIAL THROMBOPLASTIN TIME PROLONGED [None]
  - HAEMOGLOBIN DECREASED [None]
  - INTERNATIONAL NORMALISED RATIO INCREASED [None]
  - PLATELET COUNT DECREASED [None]
